FAERS Safety Report 7604679-2 (Version None)
Quarter: 2011Q3

REPORT INFORMATION
  Report Type: 
  Country: None (occurrence: None)
  Receive Date: 20110712
  Receipt Date: 20110627
  Transmission Date: 20111222
  Serious: No
  Sender: FDA-Public Use
  Company Number: US-B.I. PHARMACEUTICALS,INC./RIDGEFIELD-2011-BP-16428BP

PATIENT
  Sex: Male

DRUGS (9)
  1. PRADAXA [Suspect]
     Indication: ATRIAL FIBRILLATION
     Dosage: 150 MG
     Route: 048
     Dates: start: 20110501
  2. CARVEDILOL [Concomitant]
  3. LASIX [Concomitant]
  4. LANTUS [Concomitant]
  5. DIOVAN [Concomitant]
  6. ASPIRIN [Concomitant]
     Dosage: 81 MG
  7. HUMALOG [Concomitant]
  8. TRILIPIX [Concomitant]
  9. CRESTOR [Concomitant]

REACTIONS (1)
  - BLOOD CREATININE INCREASED [None]
